FAERS Safety Report 5211667-2 (Version None)
Quarter: 2007Q1

REPORT INFORMATION
  Report Type: 
  Country: None (occurrence: None)
  Receive Date: 20070117
  Receipt Date: 20070117
  Transmission Date: 20070707
  Serious: Yes (Hospitalization, Other)
  Sender: FDA-Public Use
  Company Number: None

PATIENT
  Age: 6 Month
  Sex: Male
  Weight: 3.1752 kg

DRUGS (1)
  1. TRIAMINIC SRT [Suspect]
     Indication: NASOPHARYNGITIS
     Dosage: 1/2 TSP 1 X A NIGHT PO
     Route: 048

REACTIONS (5)
  - CEREBRAL HAEMORRHAGE [None]
  - IMPAIRED SELF-CARE [None]
  - MENTAL DISORDER [None]
  - SKIN DISCOLOURATION [None]
  - SPEECH DISORDER [None]
